FAERS Safety Report 7620240-8 (Version None)
Quarter: 2011Q3

REPORT INFORMATION
  Report Type: 
  Country: None (occurrence: None)
  Receive Date: 20110719
  Receipt Date: 20110706
  Transmission Date: 20111222
  Serious: Yes (Hospitalization, Other)
  Sender: FDA-Public Use
  Company Number: PHFR2011IE01338

PATIENT
  Sex: Male

DRUGS (16)
  1. ZOPICLONE [Concomitant]
     Dosage: 150 MG, UNK
     Route: 065
  2. AKINETON [Concomitant]
     Dosage: 2 MG, BID
     Route: 065
  3. MIRTAZAPINE [Concomitant]
     Dosage: 45 MG,  NOCTE
     Route: 065
  4. PERINDOPRIL ERBUMINE [Concomitant]
     Dosage: 5 MG, QD
     Route: 065
  5. FUROSEMIDE [Concomitant]
     Dosage: 40 MG, QD
     Route: 065
  6. LAMOTRIGINE [Concomitant]
     Dosage: 150 MG, BID
     Route: 065
  7. INDERAL [Concomitant]
     Dosage: 10 MG, TID
     Route: 065
  8. CLOPIXOL [Concomitant]
     Dosage: 10 MG, BID
     Route: 065
  9. LACTULOSE [Concomitant]
     Route: 065
  10. CLOZAPINE [Suspect]
     Indication: SCHIZOPHRENIA
     Route: 048
     Dates: start: 20041119, end: 20110201
  11. CLOZAPINE [Suspect]
     Dosage: 125 MG, 50 MG MANE 75 MG NOCTE
     Route: 065
  12. CITALOPRAM HYDROBROMIDE [Concomitant]
     Dosage: 40 MG, QD
     Route: 065
  13. GALFER [Concomitant]
     Dosage: 1 DF, DAILY
     Route: 065
  14. NEXIUM [Concomitant]
     Dosage: 40 MG, QD
     Route: 065
  15. NU-SEALS ASPIRIN [Concomitant]
     Dosage: 75 MG, QD
     Route: 065
  16. SENNA [Concomitant]
     Route: 065

REACTIONS (13)
  - RENAL FAILURE [None]
  - ATONIC URINARY BLADDER [None]
  - VOMITING [None]
  - RESIDUAL URINE VOLUME [None]
  - FAECALOMA [None]
  - DYSPNOEA [None]
  - INFECTION [None]
  - ABDOMINAL DISTENSION [None]
  - MALAISE [None]
  - URINARY TRACT INFECTION [None]
  - URINARY RETENTION [None]
  - LOWER RESPIRATORY TRACT INFECTION [None]
  - SYNCOPE [None]
